FAERS Safety Report 6392981-4 (Version None)
Quarter: 2009Q4

REPORT INFORMATION
  Report Type: 
  Country: None (occurrence: None)
  Receive Date: 20091008
  Receipt Date: 20090929
  Transmission Date: 20100525
  Serious: Yes (Hospitalization)
  Sender: FDA-Public Use
  Company Number: US-BIOGENIDEC-2009BI012824

PATIENT
  Age: 49 Year
  Sex: Male

DRUGS (3)
  1. AVONEX [Suspect]
     Indication: MULTIPLE SCLEROSIS
     Route: 030
     Dates: end: 20090601
  2. AVONEX [Suspect]
     Route: 030
     Dates: start: 19990408
  3. UNKNOWN NARCOTICS [Concomitant]
     Dates: start: 20090601

REACTIONS (4)
  - COMA [None]
  - INTERVERTEBRAL DISC PROTRUSION [None]
  - OVERDOSE [None]
  - SPINAL FUSION SURGERY [None]
